FAERS Safety Report 13177617 (Version 1)
Quarter: 2017Q1

REPORT INFORMATION
  Report Type: Report from Study
  Country: US (occurrence: US)
  Receive Date: 20170201
  Receipt Date: 20170201
  Transmission Date: 20170428
  Serious: No
  Sender: FDA-Public Use
  Company Number: US-EXELIXIS-CABO-16007468

PATIENT
  Sex: Female

DRUGS (6)
  1. CALCITRIOL. [Concomitant]
     Active Substance: CALCITRIOL
  2. COMETRIQ [Suspect]
     Active Substance: CABOZANTINIB S-MALATE
     Indication: THYROID CANCER
     Dosage: 60 MG, QD
     Route: 048
     Dates: start: 20160725, end: 201609
  3. POTASSIUM [Concomitant]
     Active Substance: POTASSIUM
  4. LEVOTHYROXINE. [Concomitant]
     Active Substance: LEVOTHYROXINE
  5. COMETRIQ [Suspect]
     Active Substance: CABOZANTINIB S-MALATE
     Indication: METASTASES TO BONE
     Dosage: 20 MG, QD
     Route: 048
     Dates: start: 201609
  6. OXYCODONE [Concomitant]
     Active Substance: OXYCODONE

REACTIONS (4)
  - Paraesthesia oral [Recovering/Resolving]
  - Dyspnoea exertional [Recovering/Resolving]
  - Skin ulcer [Not Recovered/Not Resolved]
  - Candida infection [Recovering/Resolving]
